FAERS Safety Report 22089788 (Version 1)
Quarter: 2023Q1

REPORT INFORMATION
  Report Type: Spontaneous
  Country: US (occurrence: US)
  Receive Date: 20230313
  Receipt Date: 20230313
  Transmission Date: 20230418
  Serious: Yes (Other)
  Sender: FDA-Public Use
  Company Number: ALC2023US001294

PATIENT

DRUGS (1)
  1. PATADAY ONCE DAILY RELIEF [Suspect]
     Active Substance: OLOPATADINE HYDROCHLORIDE
     Indication: Product used for unknown indication
     Dosage: 1 DRP IN RIGHT EYE
     Route: 047

REACTIONS (4)
  - Vitreous detachment [Unknown]
  - Vitreous floaters [Unknown]
  - Vision blurred [Unknown]
  - Eye pain [Unknown]
